FAERS Safety Report 12866960 (Version 1)
Quarter: 2016Q4

REPORT INFORMATION
  Report Type: Spontaneous
  Country: US (occurrence: US)
  Receive Date: 20161020
  Receipt Date: 20161020
  Transmission Date: 20170207
  Serious: No
  Sender: FDA-Public Use
  Company Number: US-JAZZ-2016-US-014335

PATIENT
  Sex: Female

DRUGS (20)
  1. XYREM [Suspect]
     Active Substance: SODIUM OXYBATE
     Dosage: DOSE ADJUSTMENTS
     Route: 048
     Dates: start: 200702, end: 200811
  2. METHYLPHENIDATE LA [Concomitant]
  3. EFFEXOR [Concomitant]
     Active Substance: VENLAFAXINE HYDROCHLORIDE
  4. FLOVENT [Concomitant]
     Active Substance: FLUTICASONE PROPIONATE
  5. WELLBUTRIN [Concomitant]
     Active Substance: BUPROPION HYDROCHLORIDE
  6. 5-HTP [Concomitant]
     Active Substance: OXITRIPTAN
  7. COMBIPATCH [Concomitant]
     Active Substance: ESTRADIOL\NORETHINDRONE ACETATE
  8. CHANTIX [Concomitant]
     Active Substance: VARENICLINE TARTRATE
  9. NAPROXEN SODIUM. [Concomitant]
     Active Substance: NAPROXEN SODIUM
  10. ALBUTEROL. [Concomitant]
     Active Substance: ALBUTEROL
  11. XYREM [Suspect]
     Active Substance: SODIUM OXYBATE
     Indication: NARCOLEPSY
     Dosage: 2.25 G, BID
     Route: 048
     Dates: start: 200701, end: 200702
  12. XYREM [Suspect]
     Active Substance: SODIUM OXYBATE
     Dosage: 4.5 G, FIRST DOSE
     Route: 048
     Dates: start: 200811
  13. XYREM [Suspect]
     Active Substance: SODIUM OXYBATE
     Dosage: 3 G, SECOND DOSE
     Route: 048
     Dates: start: 200811
  14. PROVIGIL [Concomitant]
     Active Substance: MODAFINIL
  15. RELAFEN [Concomitant]
     Active Substance: NABUMETONE
  16. SYNTHROID [Concomitant]
     Active Substance: LEVOTHYROXINE SODIUM
  17. KLONOPIN [Concomitant]
     Active Substance: CLONAZEPAM
  18. LIPITOR [Concomitant]
     Active Substance: ATORVASTATIN CALCIUM
  19. NADOLOL. [Concomitant]
     Active Substance: NADOLOL
  20. VALERIAN ROOT [Concomitant]
     Active Substance: VALERIAN

REACTIONS (1)
  - Hypertension [Not Recovered/Not Resolved]

NARRATIVE: CASE EVENT DATE: 2015
